FAERS Safety Report 10967711 (Version 1)
Quarter: 2015Q1

REPORT INFORMATION
  Report Type: Spontaneous
  Country: US (occurrence: US)
  Receive Date: 20150330
  Receipt Date: 20150330
  Transmission Date: 20150721
  Serious: No
  Sender: FDA-Public Use
  Company Number: US-ASTRAZENECA-2014SE17644

PATIENT
  Age: 54 Year
  Sex: Female
  Weight: 49 kg

DRUGS (3)
  1. NEXIUM [Suspect]
     Active Substance: ESOMEPRAZOLE MAGNESIUM
     Indication: FLATULENCE
     Route: 048
     Dates: start: 20131126, end: 20131129
  2. NEXIUM [Suspect]
     Active Substance: ESOMEPRAZOLE MAGNESIUM
     Indication: GASTRITIS
     Route: 048
     Dates: start: 20131126, end: 20131129
  3. NEXIUM [Suspect]
     Active Substance: ESOMEPRAZOLE MAGNESIUM
     Indication: ABDOMINAL DISTENSION
     Route: 048
     Dates: start: 20131126, end: 20131129

REACTIONS (7)
  - Drug hypersensitivity [Unknown]
  - Lip swelling [Unknown]
  - Product use issue [Unknown]
  - Intentional product misuse [Unknown]
  - Throat irritation [Unknown]
  - Eye swelling [Unknown]
  - Swelling face [Unknown]

NARRATIVE: CASE EVENT DATE: 20131128
